FAERS Safety Report 16372778 (Version 1)
Quarter: 2019Q2

REPORT INFORMATION
  Report Type: Spontaneous
  Country: FI (occurrence: FI)
  Receive Date: 20190530
  Receipt Date: 20190530
  Transmission Date: 20190711
  Serious: Yes (Life-Threatening)
  Sender: FDA-Public Use
  Company Number: FI-NOVOPROD-664155

PATIENT
  Age: 49 Year
  Sex: Female

DRUGS (4)
  1. AMLODIPIN ACTAVIS [AMLODIPINE BESILATE] [Concomitant]
     Dosage: 10 MG, QD
  2. LIPANTHYL PENTA [Concomitant]
     Active Substance: FENOFIBRATE
     Dosage: UNK
  3. SAXENDA [Suspect]
     Active Substance: LIRAGLUTIDE
     Indication: OVERWEIGHT
     Dosage: 3 MG, QD
     Route: 058
     Dates: start: 20190115, end: 20190323
  4. CANDESARTAN ORION [Concomitant]
     Active Substance: CANDESARTAN
     Dosage: 8 MG, QD

REACTIONS (5)
  - Intra-abdominal haematoma [Not Recovered/Not Resolved]
  - Splenectomy [Not Recovered/Not Resolved]
  - Cholecystectomy [Not Recovered/Not Resolved]
  - Splenic haematoma [Not Recovered/Not Resolved]
  - Pancreatitis acute [Not Recovered/Not Resolved]

NARRATIVE: CASE EVENT DATE: 20190323
